FAERS Safety Report 13088284 (Version 1)
Quarter: 2017Q1

REPORT INFORMATION
  Report Type: Spontaneous
  Country: US (occurrence: US)
  Receive Date: 20170105
  Receipt Date: 20170105
  Transmission Date: 20170428
  Serious: Yes (Death, Hospitalization, Other)
  Sender: FDA-Public Use
  Company Number: US-GLAXOSMITHKLINE-US2016GSK194392

PATIENT
  Age: 46 Year
  Sex: Female

DRUGS (4)
  1. BUPROPION. [Suspect]
     Active Substance: BUPROPION
     Indication: PRODUCT USED FOR UNKNOWN INDICATION
     Route: 048
  2. TAPENTADOL [Suspect]
     Active Substance: TAPENTADOL
     Indication: PRODUCT USED FOR UNKNOWN INDICATION
     Route: 048
  3. AMITRIPTYLINE [Suspect]
     Active Substance: AMITRIPTYLINE
     Indication: PRODUCT USED FOR UNKNOWN INDICATION
     Route: 048
  4. DIAZEPAM. [Suspect]
     Active Substance: DIAZEPAM
     Indication: PRODUCT USED FOR UNKNOWN INDICATION
     Route: 048

REACTIONS (13)
  - Completed suicide [Fatal]
  - Seizure [Unknown]
  - Overdose [Unknown]
  - Dystonia [Unknown]
  - Posturing [Unknown]
  - Pulmonary congestion [Unknown]
  - Oedema [Unknown]
  - Restlessness [Unknown]
  - Confusional state [Unknown]
  - Mental status changes [Unknown]
  - Postictal state [Unknown]
  - Agitation [Unknown]
  - Cardiac arrest [Fatal]
